FAERS Safety Report 18049699 (Version 1)
Quarter: 2020Q3

REPORT INFORMATION
  Report Type: Spontaneous
  Country: QA (occurrence: QA)
  Receive Date: 20200721
  Receipt Date: 20200721
  Transmission Date: 20201104
  Serious: Yes (Other)
  Sender: FDA-Public Use
  Company Number: QA-PFIZER INC-2020276456

PATIENT
  Age: 32 Year
  Sex: Male

DRUGS (3)
  1. DENOSUMAB [Suspect]
     Active Substance: DENOSUMAB
     Dosage: UNK
     Dates: start: 201907
  2. ALECTINIB. [Suspect]
     Active Substance: ALECTINIB
     Dosage: UNK
     Dates: start: 20191014
  3. CRIZOTINIB [Suspect]
     Active Substance: CRIZOTINIB
     Dosage: UNK

REACTIONS (3)
  - Neoplasm progression [Unknown]
  - Dyspnoea [Recovered/Resolved]
  - Pericardial effusion [Recovered/Resolved]
